FAERS Safety Report 16254979 (Version 1)
Quarter: 2019Q2

REPORT INFORMATION
  Report Type: Spontaneous
  Country: US (occurrence: US)
  Receive Date: 20190430
  Receipt Date: 20190430
  Transmission Date: 20190711
  Serious: No
  Sender: FDA-Public Use
  Company Number: US-ASTRAZENECA-2019SE60726

PATIENT
  Age: 58 Year
  Sex: Male
  Weight: 81.6 kg

DRUGS (1)
  1. SYMBICORT [Suspect]
     Active Substance: BUDESONIDE\FORMOTEROL FUMARATE DIHYDRATE
     Indication: CHRONIC OBSTRUCTIVE PULMONARY DISEASE
     Dosage: TWO INHALATIONS, TWICE DAILY
     Route: 055
     Dates: start: 2017

REACTIONS (8)
  - Incorrect dose administered [Unknown]
  - Device issue [Unknown]
  - Aphonia [Not Recovered/Not Resolved]
  - Wrong technique in product usage process [Unknown]
  - Intentional device misuse [Unknown]
  - Intentional dose omission [Unknown]
  - Drug ineffective [Not Recovered/Not Resolved]
  - Vocal cord paralysis [Not Recovered/Not Resolved]

NARRATIVE: CASE EVENT DATE: 2017
